FAERS Safety Report 19756036 (Version 1)
Quarter: 2021Q3

REPORT INFORMATION
  Report Type: Spontaneous
  Country: US (occurrence: US)
  Receive Date: 20210827
  Receipt Date: 20210827
  Transmission Date: 20211014
  Serious: Yes (Other)
  Sender: FDA-Public Use
  Company Number: US-JNJFOC-20210840933

PATIENT
  Age: 65 Year
  Sex: Male

DRUGS (1)
  1. SIMPONI ARIA [Suspect]
     Active Substance: GOLIMUMAB
     Indication: ANKYLOSING SPONDYLITIS
     Route: 042

REACTIONS (3)
  - Tracheomalacia [Unknown]
  - Bronchiolitis [Unknown]
  - Infusion related reaction [Unknown]
